FAERS Safety Report 10244770 (Version 1)
Quarter: 2014Q1

REPORT INFORMATION
  Report Type: Spontaneous
  Country: US (occurrence: None)
  Receive Date: 20140306
  Receipt Date: 20140306
  Transmission Date: 20141002
  Serious: Yes (Hospitalization)
  Sender: FDA-Public Use
  Company Number: 163-21880-13042187

PATIENT
  Age: 81 Year
  Sex: Female

DRUGS (14)
  1. REVLIMID (LENALIDOMIDE) (15 MILLIGRAM, CAPSULES) [Suspect]
     Indication: PLASMA CELL MYELOMA
     Route: 048
     Dates: start: 20121222
  2. KCL (POTASSIUM CHLORIDE) (UNKNOWN) [Concomitant]
  3. MVI (UNKNOWN) [Concomitant]
  4. HYDROCODONE (UNKNOWN) [Concomitant]
  5. ALLOPURINOL (UNKNOWN) [Concomitant]
  6. FUROSEMIDE (UNKNOWN) [Concomitant]
  7. ATENOLOL (UNKNOWN) [Concomitant]
  8. VENLAFAXINE (UNKNOWN) [Concomitant]
  9. ARICEPT (DONEPEZIL HYDROCHLORIDE) (UNKNOWN) [Concomitant]
  10. OXYCODONE (UNKNOWN) [Concomitant]
  11. FLUTICASONE (NASAL DROPS (INCLUDING NASAL SPRAY) [Concomitant]
  12. FLUNISOLIDE (NASAL DROPS (INCLUDING NASAL SPRAY) [Concomitant]
  13. ONDASETRON (UNKNOWN) [Concomitant]
  14. NEUPOGEN (FILGRASTIM) (UNKNOWN) [Concomitant]

REACTIONS (1)
  - Urinary tract infection [None]
